FAERS Safety Report 5093569-8 (Version None)
Quarter: 2006Q3

REPORT INFORMATION
  Report Type: 
  Country: None (occurrence: None)
  Receive Date: 20060829
  Receipt Date: 20060811
  Transmission Date: 20061208
  Serious: Yes (Hospitalization, Other)
  Sender: FDA-Public Use
  Company Number: US200511002413

PATIENT
  Age: 38 Year
  Sex: Female
  Weight: 77.1 kg

DRUGS (2)
  1. ZYPREXA [Suspect]
     Indication: DEPRESSION
     Dosage: 7.5 MG
     Dates: start: 20021012
  2. HYDROCHLOROTHIAZIDE [Concomitant]

REACTIONS (5)
  - ANGIOGRAM [None]
  - DIABETES MELLITUS NON-INSULIN-DEPENDENT [None]
  - DIABETIC COMA [None]
  - INSULIN RESISTANCE [None]
  - METABOLIC DISORDER [None]
